FAERS Safety Report 8599627-5 (Version None)
Quarter: 2012Q3

REPORT INFORMATION
  Report Type: 
  Country: None (occurrence: None)
  Receive Date: 20120802
  Receipt Date: 20120718
  Transmission Date: 20120928
  Serious: Yes (Life-Threatening)
  Sender: FDA-Public Use
  Company Number: FK201202096

PATIENT
  Age: 52 Year
  Sex: Female

DRUGS (11)
  1. DESLORATADINE [Concomitant]
  2. LEVOTHYROXINE SODIUM [Concomitant]
  3. SALBUTAMOL (SALVUTAMOL) [Concomitant]
  4. VITAMIN B SUBSTANCES (B-KOMPLEX) [Concomitant]
  5. FERROUS FUMARATE [Concomitant]
  6. LETROZOLE [Suspect]
     Indication: BREAST CANCER
     Dosage: 2.5 MG, ORAL
     Route: 048
     Dates: start: 20120506, end: 20120516
  7. OMEPRAZOLE [Concomitant]
  8. CLENIL MODULITE (BECLOMETASONE DIPROPIONATE) [Concomitant]
  9. LACTULOSE [Concomitant]
  10. MOMETASONE FUROATE [Concomitant]
  11. THIAMINE HCL [Concomitant]

REACTIONS (3)
  - LIVER DISORDER [None]
  - CONDITION AGGRAVATED [None]
  - JAUNDICE [None]
